FAERS Safety Report 10225101 (Version 1)
Quarter: 2014Q2

REPORT INFORMATION
  Report Type: Spontaneous
  Country: IT (occurrence: IT)
  Receive Date: 20140609
  Receipt Date: 20140609
  Transmission Date: 20141212
  Serious: Yes (Other)
  Sender: FDA-Public Use
  Company Number: IT-ACTAVIS-2013-25782

PATIENT
  Age: 48 Year
  Sex: Female
  Weight: 56 kg

DRUGS (6)
  1. DOCETAXEL ACTAVIS [Suspect]
     Indication: BREAST NEOPLASM
     Dosage: 120 MG, CYCLICAL
     Route: 042
     Dates: start: 20130711, end: 20130801
  2. ENDOXAN                            /00021101/ [Suspect]
     Indication: BREAST NEOPLASM
     Dosage: 960 MG, CYCLICAL
     Route: 042
     Dates: start: 20130704, end: 20130801
  3. CYANOCOBALAMIN [Concomitant]
     Indication: ANAEMIA
  4. FOLIC ACID [Concomitant]
     Indication: ANAEMIA
  5. IRON [Concomitant]
     Indication: ANAEMIA
  6. EUTIROX [Concomitant]
     Indication: HYPOTHYROIDISM

REACTIONS (3)
  - Chest discomfort [Recovered/Resolved]
  - Feeling hot [Recovered/Resolved]
  - Back pain [Recovered/Resolved]
